FAERS Safety Report 5049488-6 (Version None)
Quarter: 2006Q3

REPORT INFORMATION
  Report Type: 
  Country: None (occurrence: None)
  Receive Date: 20060711
  Receipt Date: 20060711
  Transmission Date: 20061208
  Serious: Yes (Hospitalization)
  Sender: FDA-Public Use
  Company Number: None

PATIENT
  Age: 81 Year
  Sex: Female
  Weight: 63.5036 kg

DRUGS (13)
  1. CUBICIN [Suspect]
     Indication: SKIN INFECTION
     Dosage: 250MG   Q24H    IVPB
     Route: 042
     Dates: start: 20060503, end: 20060507
  2. CUBICIN [Suspect]
     Indication: SOFT TISSUE INFECTION
     Dosage: 250MG   Q24H    IVPB
     Route: 042
     Dates: start: 20060503, end: 20060507
  3. PROTONIX [Concomitant]
  4. AVAPRO [Concomitant]
  5. EFFEXOR [Concomitant]
  6. ALLEGRA [Concomitant]
  7. ASPIRIN [Concomitant]
  8. LOVENOX [Concomitant]
  9. IMDUR [Concomitant]
  10. ZOSYN [Concomitant]
  11. LASIX [Concomitant]
  12. OSCAL D [Concomitant]
  13. AMARYL [Concomitant]

REACTIONS (5)
  - BLOOD CREATINE PHOSPHOKINASE INCREASED [None]
  - BLOOD CREATININE INCREASED [None]
  - BLOOD UREA INCREASED [None]
  - CREATININE RENAL CLEARANCE DECREASED [None]
  - MYOGLOBIN BLOOD INCREASED [None]
